FAERS Safety Report 4947583-0 (Version None)
Quarter: 2006Q1

REPORT INFORMATION
  Report Type: 
  Country: None (occurrence: None)
  Receive Date: 20060320
  Receipt Date: 20060222
  Transmission Date: 20060701
  Serious: Yes (Other)
  Sender: FDA-Public Use
  Company Number: PHMT2006CA00738

PATIENT
  Sex: Female

DRUGS (2)
  1. IMOVANE [Concomitant]
     Dosage: 1/2 TABLET FROM TIME TO TIME
  2. ZELNORM [Suspect]
     Indication: IRRITABLE BOWEL SYNDROME
     Dosage: 1 TABLET PER DAY, NOT EVERY DAY
     Dates: start: 20000101

REACTIONS (2)
  - ABORTION SPONTANEOUS [None]
  - DRUG EXPOSURE DURING PREGNANCY [None]
